FAERS Safety Report 19569782 (Version 3)
Quarter: 2024Q4

REPORT INFORMATION
  Report Type: Report from Study
  Country: DE (occurrence: DE)
  Receive Date: 20210716
  Receipt Date: 20241004
  Transmission Date: 20250115
  Serious: Yes (Other)
  Sender: PFIZER
  Company Number: DE-CELLTRION HEALTHCARE HUNGARY KFT-2021DE007783

PATIENT
  Age: 83 Year
  Sex: Female

DRUGS (1)
  1. RITUXIMAB [Suspect]
     Active Substance: RITUXIMAB
     Indication: Rheumatoid arthritis
     Dosage: 680 MG, EVERY 4 WEEKS, CONCENTRATE FOR SOLUTION FOR INFUSION
     Route: 042

REACTIONS (4)
  - Foot deformity [Recovered/Resolved]
  - Skin ulcer [Recovered/Resolved]
  - Off label use [Unknown]
  - Off label use [Unknown]

NARRATIVE: CASE EVENT DATE: 20201207
